FAERS Safety Report 7237709-0 (Version None)
Quarter: 2011Q1

REPORT INFORMATION
  Report Type: 
  Country: None (occurrence: None)
  Receive Date: 20110113
  Receipt Date: 20110106
  Transmission Date: 20110831
  Serious: Yes (Death)
  Sender: FDA-Public Use
  Company Number: TAJPN-10-0680

PATIENT
  Age: 60 Year
  Sex: Female
  Weight: 57 kg

DRUGS (15)
  1. ETODOLAC [Concomitant]
  2. ABRAXANE [Suspect]
     Indication: BREAST CANCER
     Dosage: 403 MG
     Dates: start: 20101124, end: 20101124
  3. DUROTEP (FENTANYL) [Concomitant]
  4. LAMIVUDINE(PEPFAR) [Concomitant]
  5. SELBEX (TEPRENONE) [Concomitant]
  6. KYTRIL [Concomitant]
  7. CLONAZEPAM [Concomitant]
  8. TACROLIMUS [Concomitant]
  9. DECADRON [Concomitant]
  10. HYSRON (MEDROXYPROGESTERONE ACETATE) [Concomitant]
  11. AMARYL [Concomitant]
  12. APIDRA [Concomitant]
  13. ADOFEED (FLURBIPROFEN) [Concomitant]
  14. PRIMPERAN TAB [Concomitant]
  15. HEPSERA [Concomitant]

REACTIONS (14)
  - WHITE BLOOD CELL COUNT DECREASED [None]
  - LOSS OF CONSCIOUSNESS [None]
  - BLOOD UREA INCREASED [None]
  - BONE MARROW FAILURE [None]
  - WRONG DRUG ADMINISTERED [None]
  - NEUTROPHIL COUNT DECREASED [None]
  - BLOOD PH DECREASED [None]
  - RESTLESSNESS [None]
  - SEPSIS [None]
  - NEUROPATHY PERIPHERAL [None]
  - BLOOD POTASSIUM INCREASED [None]
  - CARDIO-RESPIRATORY ARREST [None]
  - STAPHYLOCOCCAL INFECTION [None]
  - BLOOD CREATININE INCREASED [None]
